FAERS Safety Report 7395562-9 (Version None)
Quarter: 2011Q2

REPORT INFORMATION
  Report Type: 
  Country: None (occurrence: None)
  Receive Date: 20110405
  Receipt Date: 20110307
  Transmission Date: 20111010
  Serious: Yes (Hospitalization, Other)
  Sender: FDA-Public Use
  Company Number: US-BAYER-2011-018808

PATIENT
  Sex: Female

DRUGS (10)
  1. PRILOSEC [Concomitant]
  2. YASMIN [Suspect]
     Indication: POLYCYSTIC OVARIES
  3. YAZ [Suspect]
     Indication: POLYCYSTIC OVARIES
  4. YASMIN [Suspect]
     Indication: CONTRACEPTION
     Dosage: UNK
     Dates: start: 20080101, end: 20090101
  5. METFORMIN [Concomitant]
     Indication: METABOLIC SYNDROME
  6. CARAFATE [Concomitant]
     Indication: PAIN
  7. LOTRISONE [Concomitant]
  8. YAZ [Suspect]
     Indication: CONTRACEPTION
     Dosage: UNK
     Dates: start: 20080101, end: 20090101
  9. AZITHROMYCIN [Concomitant]
     Dosage: 500 MG, UNK
     Route: 048
  10. BYETTA [Concomitant]

REACTIONS (2)
  - CHOLECYSTECTOMY [None]
  - CHOLELITHIASIS [None]
